FAERS Safety Report 6845427-3 (Version None)
Quarter: 2010Q3

REPORT INFORMATION
  Report Type: 
  Country: None (occurrence: None)
  Receive Date: 20100715
  Receipt Date: 20071010
  Transmission Date: 20110219
  Serious: Yes (Other)
  Sender: FDA-Public Use
  Company Number: US-PFIZER INC-2007068998

PATIENT
  Sex: Female
  Weight: 95.5 kg

DRUGS (8)
  1. CHANTIX [Suspect]
     Indication: SMOKING CESSATION THERAPY
     Dosage: 1 MG BID
     Dates: start: 20070807
  2. ADVAIR DISKUS 100/50 [Concomitant]
     Route: 055
  3. LISINOPRIL [Concomitant]
  4. DUONEB [Concomitant]
  5. PROCATEROL HCL [Concomitant]
     Route: 055
  6. HYDROCODONE [Concomitant]
  7. XOPENEX [Concomitant]
  8. IBUPROFEN [Concomitant]

REACTIONS (3)
  - CIRCADIAN RHYTHM SLEEP DISORDER [None]
  - DYSPNOEA [None]
  - LUNG DISORDER [None]
